FAERS Safety Report 19372239 (Version 1)
Quarter: 2021Q2

REPORT INFORMATION
  Report Type: Spontaneous
  Country: MA (occurrence: MA)
  Receive Date: 20210604
  Receipt Date: 20210604
  Transmission Date: 20210717
  Serious: Yes (Other)
  Sender: FDA-Public Use
  Company Number: MA-IPCA LABORATORIES LIMITED-IPC-2021-MA-001098

PATIENT

DRUGS (2)
  1. HYDROXYCHLOROQUINE [Suspect]
     Active Substance: HYDROXYCHLOROQUINE
     Indication: CONFLUENT AND RETICULATE PAPILLOMATOSIS
     Dosage: 200 MILLIGRAM
     Route: 065
  2. SALAGEN [Concomitant]
     Active Substance: PILOCARPINE HYDROCHLORIDE
     Indication: CONFLUENT AND RETICULATE PAPILLOMATOSIS
     Dosage: 5 MILLIGRAM
     Route: 065

REACTIONS (3)
  - Rash maculo-papular [Recovering/Resolving]
  - Pruritus [Recovering/Resolving]
  - Toxic skin eruption [Recovering/Resolving]
